FAERS Safety Report 8811532 (Version 1)
Quarter: 2012Q4

REPORT INFORMATION
  Report Type: Report from Study
  Country: CA (occurrence: CA)
  Receive Date: 20120927
  Receipt Date: 20120927
  Transmission Date: 20130627
  Serious: Yes (Other)
  Sender: FDA-Public Use
  Company Number: CA-JNJFOC-20120908151

PATIENT
  Age: 35 None
  Sex: Female
  Weight: 71.8 kg

DRUGS (15)
  1. REMICADE [Suspect]
     Indication: COLITIS
     Route: 042
     Dates: start: 20120917
  2. REMICADE [Suspect]
     Indication: COLITIS
     Route: 042
  3. REMICADE [Suspect]
     Indication: COLITIS
     Route: 042
     Dates: start: 20110609
  4. REMICADE [Suspect]
     Indication: CROHN^S DISEASE
     Route: 042
     Dates: start: 20120917
  5. REMICADE [Suspect]
     Indication: CROHN^S DISEASE
     Route: 042
  6. REMICADE [Suspect]
     Indication: CROHN^S DISEASE
     Route: 042
     Dates: start: 20110609
  7. ALESSE [Concomitant]
     Route: 065
  8. CODEINE [Concomitant]
     Route: 065
  9. MAXERAN [Concomitant]
     Route: 065
  10. PAXIL [Concomitant]
     Route: 065
  11. ZOFRAN [Concomitant]
     Route: 065
  12. FOLIC ACID [Concomitant]
     Route: 065
  13. TRAZODONE HYDROCHLORIDE [Concomitant]
     Route: 065
  14. ONDANSETRON [Concomitant]
     Route: 065
  15. LOSEC [Concomitant]
     Route: 065

REACTIONS (4)
  - Pruritus [Recovering/Resolving]
  - Urticaria [Recovering/Resolving]
  - Skin burning sensation [Unknown]
  - Infusion related reaction [Recovering/Resolving]
